FAERS Safety Report 7406786-6 (Version None)
Quarter: 2011Q2

REPORT INFORMATION
  Report Type: 
  Country: None (occurrence: None)
  Receive Date: 20110411
  Receipt Date: 20110408
  Transmission Date: 20111010
  Serious: Yes (Life-Threatening, Hospitalization)
  Sender: FDA-Public Use
  Company Number: PHHY2011GB29119

PATIENT
  Age: 66 Year
  Sex: Male
  Weight: 79 kg

DRUGS (1)
  1. LORATADINE [Suspect]
     Dosage: 10 MG, QD
     Route: 048
     Dates: start: 20110101

REACTIONS (1)
  - LOSS OF CONSCIOUSNESS [None]
